FAERS Safety Report 8492951-6 (Version None)
Quarter: 2012Q3

REPORT INFORMATION
  Report Type: 
  Country: None (occurrence: None)
  Receive Date: 20120706
  Receipt Date: 20120703
  Transmission Date: 20120928
  Serious: Yes (Other)
  Sender: FDA-Public Use
  Company Number: ES-GLAXOSMITHKLINE-B0810724A

PATIENT
  Sex: Female

DRUGS (2)
  1. LAPATINIB [Suspect]
     Indication: BREAST CANCER
     Dosage: 1500MG PER DAY
     Route: 048
     Dates: start: 20080619, end: 20090619
  2. CAPECITABINE [Concomitant]
     Indication: COLON CANCER
     Dosage: 1800MG TWICE PER DAY
     Route: 048
     Dates: start: 20120126

REACTIONS (1)
  - COLON CANCER [None]
